FAERS Safety Report 11827472 (Version 3)
Quarter: 2016Q1

REPORT INFORMATION
  Report Type: Spontaneous
  Country: US (occurrence: US)
  Receive Date: 20151211
  Receipt Date: 20160208
  Transmission Date: 20160525
  Serious: Yes (Disabling)
  Sender: FDA-Public Use
  Company Number: CHPA2015US014592

PATIENT
  Sex: Female

DRUGS (2)
  1. KERI ORIGINAL [Suspect]
     Active Substance: LANOLIN\MINERAL OIL
     Indication: DRY SKIN
     Dosage: UNK
     Route: 061
  2. KERI ORIGINAL [Suspect]
     Active Substance: LANOLIN\MINERAL OIL
     Indication: PRURITUS
     Dosage: UNK
     Route: 061
     Dates: end: 20151205

REACTIONS (4)
  - Nausea [Unknown]
  - Product use issue [Unknown]
  - Disability [Unknown]
  - Malaise [Unknown]
